FAERS Safety Report 9547262 (Version 1)
Quarter: 2013Q2

REPORT INFORMATION
  Report Type: Spontaneous
  Country: US (occurrence: None)
  Receive Date: 20130524
  Receipt Date: 20130524
  Transmission Date: 20140414
  Serious: No
  Sender: FDA-Public Use
  Company Number: PHEH2012US024206

PATIENT
  Age: 54 Year
  Sex: Female

DRUGS (1)
  1. GILENYA (FINGOLIMOD) CAPSULE, 0.5MG [Suspect]
     Indication: MULTIPLE SCLEROSIS
     Route: 048
     Dates: start: 20121206

REACTIONS (9)
  - Constipation [None]
  - Fatigue [None]
  - Aphasia [None]
  - Dry eye [None]
  - Eye pain [None]
  - Vision blurred [None]
  - Dizziness [None]
  - Influenza [None]
  - Asthenia [None]
